FAERS Safety Report 24072037 (Version 2)
Quarter: 2024Q3

REPORT INFORMATION
  Report Type: Report from Study
  Country: GR (occurrence: GR)
  Receive Date: 20240710
  Receipt Date: 20240719
  Transmission Date: 20241017
  Serious: No
  Sender: SANDOZ
  Company Number: GR-SANDOZ-SDZ2024GR063806

PATIENT
  Age: 5 Year
  Sex: Male

DRUGS (1)
  1. OMNITROPE [Suspect]
     Active Substance: SOMATROPIN
     Indication: Growth hormone deficiency
     Dosage: UNK
     Route: 058
     Dates: start: 20240215

REACTIONS (3)
  - Injection site pain [Unknown]
  - Incorrect dose administered [Unknown]
  - Device mechanical issue [Unknown]
